FAERS Safety Report 24968486 (Version 1)
Quarter: 2025Q1

REPORT INFORMATION
  Report Type: Report from Study
  Country: AT (occurrence: AT)
  Receive Date: 20250214
  Receipt Date: 20250214
  Transmission Date: 20250409
  Serious: Yes (Death, Other)
  Sender: ROCHE
  Company Number: AT-ROCHE-10000202902

PATIENT

DRUGS (3)
  1. GLOFITAMAB [Suspect]
     Active Substance: GLOFITAMAB
     Indication: Mantle cell lymphoma
     Route: 042
  2. OBINUTUZUMAB [Concomitant]
     Active Substance: OBINUTUZUMAB
     Indication: Mantle cell lymphoma
     Route: 065
  3. TOCILIZUMAB [Concomitant]
     Active Substance: TOCILIZUMAB
     Indication: Mantle cell lymphoma
     Route: 065

REACTIONS (9)
  - Cytokine release syndrome [Unknown]
  - Immune effector cell-associated neurotoxicity syndrome [Unknown]
  - Pneumonia fungal [Unknown]
  - COVID-19 pneumonia [Unknown]
  - Parainfluenzae virus infection [Unknown]
  - Upper respiratory tract infection [Unknown]
  - Cytomegalovirus infection reactivation [Unknown]
  - Sudden cardiac death [Fatal]
  - Disease progression [Fatal]
